FAERS Safety Report 17456994 (Version 1)
Quarter: 2020Q1

REPORT INFORMATION
  Report Type: Spontaneous
  Country: PT (occurrence: PT)
  Receive Date: 20200225
  Receipt Date: 20200225
  Transmission Date: 20200409
  Serious: Yes (Hospitalization, Other)
  Sender: FDA-Public Use
  Company Number: PT-ELI_LILLY_AND_COMPANY-PT202002004166

PATIENT
  Age: 51 Year
  Sex: Female

DRUGS (7)
  1. LYRICA [Suspect]
     Active Substance: PREGABALIN
     Indication: PRODUCT USED FOR UNKNOWN INDICATION
     Dosage: UNK, UNKNOWN
     Route: 065
  2. SINVASTATINA [Concomitant]
     Active Substance: SIMVASTATIN
     Indication: BLOOD CHOLESTEROL ABNORMAL
  3. OMEPRAZOLE. [Concomitant]
     Active Substance: OMEPRAZOLE
     Indication: GASTROINTESTINAL DISORDER PROPHYLAXIS
  4. DEFLAZACORTE [Concomitant]
     Active Substance: DEFLAZACORT
     Indication: ARTHRITIS
  5. HUMALOG [Suspect]
     Active Substance: INSULIN LISPRO
     Indication: PRODUCT USED FOR UNKNOWN INDICATION
     Dosage: 10 U, QID
     Route: 065
  6. LEDERTREXATO [Concomitant]
     Active Substance: METHOTREXATE SODIUM
     Indication: ARTHRITIS
  7. CORTISONE [Suspect]
     Active Substance: CORTISONE
     Indication: RHEUMATOID ARTHRITIS
     Dosage: UNK, UNKNOWN
     Route: 065

REACTIONS (9)
  - Diabetic wound [Unknown]
  - Accidental exposure to product [Unknown]
  - Product dose omission [Unknown]
  - Blood pressure decreased [Unknown]
  - Rheumatoid arthritis [Unknown]
  - Sepsis [Unknown]
  - Foot fracture [Unknown]
  - Diabetes mellitus inadequate control [Unknown]
  - Foot deformity [Unknown]

NARRATIVE: CASE EVENT DATE: 20200207
